FAERS Safety Report 5978153-3 (Version None)
Quarter: 2008Q4

REPORT INFORMATION
  Report Type: 
  Country: None (occurrence: None)
  Receive Date: 20081204
  Receipt Date: 20081124
  Transmission Date: 20090506
  Serious: Yes (Other)
  Sender: FDA-Public Use
  Company Number: US-JNJFOC-20081106165

PATIENT
  Age: 76 Year
  Sex: Male
  Weight: 72.58 kg

DRUGS (8)
  1. TYLENOL (CAPLET) [Suspect]
     Route: 048
  2. TYLENOL (CAPLET) [Suspect]
     Indication: ARTHRITIS
     Route: 048
  3. PLAVIX [Suspect]
     Indication: PROPHYLAXIS
  4. PLAVIX [Suspect]
     Indication: BLOOD PRESSURE ABNORMAL
  5. FOLIC ACID [Concomitant]
     Indication: MEDICAL DIET
  6. TERAZOSIN HCL [Concomitant]
     Indication: PROSTATIC DISORDER
  7. DOCUSATE [Concomitant]
     Indication: ABNORMAL FAECES
  8. SIMVASTATIN [Concomitant]
     Indication: BLOOD CHOLESTEROL ABNORMAL

REACTIONS (1)
  - HAEMATOCHEZIA [None]
